FAERS Safety Report 7639151-7 (Version None)
Quarter: 2011Q3

REPORT INFORMATION
  Report Type: 
  Country: None (occurrence: None)
  Receive Date: 20110727
  Receipt Date: 20110718
  Transmission Date: 20111222
  Serious: Yes (Hospitalization, Other)
  Sender: FDA-Public Use
  Company Number: US-ASTRAZENECA-2011SE43185

PATIENT
  Age: 63 Year
  Sex: Female

DRUGS (16)
  1. HYDRALAZINE HCL [Concomitant]
     Route: 048
  2. ERGOCALCIFEROL [Concomitant]
  3. FUROSEMIDE [Concomitant]
     Route: 048
  4. CYCLOSPORINE MODIFIED [Concomitant]
     Route: 048
  5. ALPRAZOLAM [Concomitant]
     Route: 048
  6. INSULIN ASPART SS [Concomitant]
     Dosage: BEFORE MEALS (8,12,17)
  7. CYCLOSPORINE MODIFIED [Concomitant]
     Route: 048
  8. PREDNISONE [Concomitant]
     Route: 048
  9. MEROPENEM [Concomitant]
     Route: 042
  10. METOPROLOL TARTRATE [Concomitant]
     Route: 048
  11. NIFEDIPINE [Concomitant]
     Route: 048
  12. CALCITRIOL [Concomitant]
     Route: 048
  13. SODIUM BICARBONATE [Concomitant]
     Route: 048
  14. ESOMEPRAZOLE MAGNESIUM [Suspect]
     Route: 048
  15. DIGOXIN [Concomitant]
     Route: 048
  16. WARFARIN SODIUM [Concomitant]
     Route: 048

REACTIONS (14)
  - PYREXIA [None]
  - SLEEP APNOEA SYNDROME [None]
  - CORONARY ARTERY DISEASE [None]
  - INFECTED CYST [None]
  - CHOLECYSTITIS [None]
  - CHOLEDOCHOENTEROSTOMY [None]
  - ANAEMIA [None]
  - RENAL TRANSPLANT [None]
  - CORONARY ARTERIAL STENT INSERTION [None]
  - CHOLANGITIS [None]
  - CONGENITAL CYSTIC KIDNEY DISEASE [None]
  - HYPERTENSION [None]
  - ATRIAL FIBRILLATION [None]
  - REFUSAL OF TREATMENT BY PATIENT [None]
